FAERS Safety Report 10225464 (Version 2)
Quarter: 2014Q2

REPORT INFORMATION
  Report Type: Spontaneous
  Country: US (occurrence: US)
  Receive Date: 20140609
  Receipt Date: 20140609
  Transmission Date: 20141212
  Serious: Yes (Hospitalization, Other)
  Sender: FDA-Public Use
  Company Number: US-ASTELLAS-2010US003429

PATIENT
  Sex: Male
  Weight: 62 kg

DRUGS (18)
  1. PROGRAF [Suspect]
     Indication: RENAL TRANSPLANT
     Route: 048
     Dates: start: 2010
  2. PROGRAF [Suspect]
     Route: 048
     Dates: start: 19960903
  3. PROGRAF [Suspect]
     Dosage: 0.5 MG, ONCE DAILY
     Route: 048
  4. NEXIUM [Suspect]
     Indication: GASTROOESOPHAGEAL REFLUX DISEASE
     Route: 048
     Dates: end: 201310
  5. HEPARIN [Suspect]
     Indication: PRODUCT USED FOR UNKNOWN INDICATION
     Route: 065
  6. MYFORTIC [Concomitant]
     Indication: IMMUNOSUPPRESSION
     Route: 048
     Dates: start: 19960903
  7. PREDNISONE [Concomitant]
     Indication: IMMUNOSUPPRESSION
     Route: 048
     Dates: start: 19960903
  8. PREDNISONE [Concomitant]
     Route: 048
  9. AMLODIPINE [Concomitant]
     Indication: HYPERTENSION
     Route: 048
     Dates: end: 201310
  10. ATENOLOL [Concomitant]
     Indication: HYPERTENSION
     Route: 048
  11. LEXAPRO [Concomitant]
     Indication: DEPRESSION
     Route: 048
     Dates: end: 201310
  12. MVI [Concomitant]
     Indication: VITAMIN SUPPLEMENTATION
     Route: 048
  13. VITAMIN D [Concomitant]
     Indication: VITAMIN SUPPLEMENTATION
     Route: 048
  14. BACTRIM [Concomitant]
     Indication: ANTIBIOTIC THERAPY
     Route: 048
  15. SIMVASTATIN [Concomitant]
     Indication: BLOOD CHOLESTEROL INCREASED
     Dosage: 20 MG, UID/QD, NIGHTLY AT BEDTIME
     Route: 048
  16. CELLCEPT [Concomitant]
     Indication: IMMUNOSUPPRESSION
     Route: 048
  17. VALCYTE [Concomitant]
     Indication: PROPHYLAXIS
     Route: 048
  18. ASPIRIN [Concomitant]
     Indication: PRODUCT USED FOR UNKNOWN INDICATION
     Route: 048

REACTIONS (16)
  - Cholecystectomy [Unknown]
  - Abdominal cavity drainage [Recovering/Resolving]
  - Hepatic encephalopathy [Unknown]
  - Hypoalbuminaemia [Unknown]
  - Portal hypertension [Unknown]
  - Abdominal hernia [Unknown]
  - Mental status changes postoperative [Recovered/Resolved]
  - Immunosuppressant drug level increased [Recovering/Resolving]
  - Leukocytosis [Recovered/Resolved]
  - Transplant failure [Recovered/Resolved]
  - Dysphagia [Recovering/Resolving]
  - Lung disorder [Unknown]
  - Anxiety [Unknown]
  - Pleural effusion [Recovering/Resolving]
  - Renal failure acute [Unknown]
  - Thrombocytopenia [Recovering/Resolving]
